FAERS Safety Report 6641119-4 (Version None)
Quarter: 2010Q1

REPORT INFORMATION
  Report Type: 
  Country: None (occurrence: None)
  Receive Date: 20100318
  Receipt Date: 20091104
  Transmission Date: 20100710
  Serious: No
  Sender: FDA-Public Use
  Company Number: US-ASTRAZENECA-2009SE24373

PATIENT
  Age: 52 Year
  Sex: Female

DRUGS (1)
  1. LISINOPRIL [Suspect]
     Route: 048

REACTIONS (2)
  - COUGH [None]
  - DRY THROAT [None]
